FAERS Safety Report 19306691 (Version 5)
Quarter: 2021Q3

REPORT INFORMATION
  Report Type: Report from Study
  Country: US (occurrence: US)
  Receive Date: 20210526
  Receipt Date: 20210726
  Transmission Date: 20211014
  Serious: Yes (Other)
  Sender: FDA-Public Use
  Company Number: NVSC2021US113617

PATIENT
  Sex: Male

DRUGS (1)
  1. COSENTYX [Suspect]
     Active Substance: SECUKINUMAB
     Indication: PSORIATIC ARTHROPATHY
     Dosage: 150 MG, QMO  EVERY 28 DAYS (USUALLY VIA INJECTION?BENEATH THE SKIN)
     Route: 058

REACTIONS (3)
  - Psoriatic arthropathy [Recovering/Resolving]
  - Hepatic enzyme increased [Not Recovered/Not Resolved]
  - Therapeutic product effect incomplete [Recovering/Resolving]
